FAERS Safety Report 11348015 (Version 1)
Quarter: 2015Q3

REPORT INFORMATION
  Report Type: Spontaneous
  Country: US (occurrence: US)
  Receive Date: 20150803
  Receipt Date: 20150803
  Transmission Date: 20151125
  Serious: Yes (Hospitalization)
  Sender: FDA-Public Use
  Company Number: US-ELI_LILLY_AND_COMPANY-US201102003945

PATIENT
  Sex: Female

DRUGS (3)
  1. ZYPREXA [Suspect]
     Active Substance: OLANZAPINE
     Indication: BIPOLAR DISORDER
     Dosage: 5 MG, 3/D
     Dates: start: 1998
  2. COGENTIN [Concomitant]
     Active Substance: BENZTROPINE MESYLATE
  3. HALDOL [Concomitant]
     Active Substance: HALOPERIDOL

REACTIONS (5)
  - Malaise [Unknown]
  - Alopecia [Unknown]
  - Tremor [Unknown]
  - Diabetes mellitus [Unknown]
  - Inappropriate schedule of drug administration [Unknown]
